FAERS Safety Report 15964533 (Version 1)
Quarter: 2019Q1

REPORT INFORMATION
  Report Type: Spontaneous
  Country: US (occurrence: US)
  Receive Date: 20190215
  Receipt Date: 20190215
  Transmission Date: 20190417
  Serious: Yes (Other)
  Sender: FDA-Public Use
  Company Number: PHHY2018US110762

PATIENT
  Age: 28 Year
  Sex: Male

DRUGS (1)
  1. TRIAMCINOLONE ACETONIDE. [Suspect]
     Active Substance: TRIAMCINOLONE ACETONIDE
     Indication: CHALAZION
     Dosage: 10 MG/ML, INTRAPALPEBRAL
     Route: 047

REACTIONS (6)
  - Chorioretinopathy [Recovering/Resolving]
  - Visual field defect [Unknown]
  - Visual impairment [Unknown]
  - Visual acuity reduced [Unknown]
  - Detachment of retinal pigment epithelium [Unknown]
  - Product use in unapproved indication [Unknown]
